FAERS Safety Report 7485140-5 (Version None)
Quarter: 2011Q2

REPORT INFORMATION
  Report Type: 
  Country: None (occurrence: None)
  Receive Date: 20110517
  Receipt Date: 20101124
  Transmission Date: 20111010
  Serious: No
  Sender: FDA-Public Use
  Company Number: US-BAYER-2010-006868

PATIENT
  Sex: Female

DRUGS (3)
  1. VOLTAREN [Concomitant]
  2. ALEVE (CAPLET) [Suspect]
     Dosage: 440 MG, ONCE
     Route: 048
  3. EXCEDRIN P.M. [Concomitant]
     Indication: SLEEP DISORDER THERAPY
     Dosage: 1 DF, ONCE

REACTIONS (1)
  - ABDOMINAL DISCOMFORT [None]
